FAERS Safety Report 13014899 (Version 2)
Quarter: 2017Q1

REPORT INFORMATION
  Report Type: Spontaneous
  Country: FR (occurrence: FR)
  Receive Date: 20161209
  Receipt Date: 20170221
  Transmission Date: 20170428
  Serious: Yes (Hospitalization, Other)
  Sender: FDA-Public Use
  Company Number: FR-AMGEN-FRASP2016171070

PATIENT
  Age: 73 Year
  Sex: Male
  Weight: 83 kg

DRUGS (5)
  1. DECAPEPTYL [Concomitant]
     Active Substance: TRIPTORELIN
  2. CASODEX [Concomitant]
     Active Substance: BICALUTAMIDE
  3. TEMESTA [Concomitant]
     Active Substance: LORAZEPAM
  4. XGEVA [Suspect]
     Active Substance: DENOSUMAB
     Indication: PROSTATE CANCER
     Dosage: 120 MG, Q4WK
     Route: 058
     Dates: start: 20161017
  5. UN-ALFA [Concomitant]
     Active Substance: ALFACALCIDOL

REACTIONS (4)
  - Renal impairment [Unknown]
  - Hypocalcaemia [Recovered/Resolved]
  - Electrocardiogram QT prolonged [Unknown]
  - Blood creatinine abnormal [Unknown]
